FAERS Safety Report 9859851 (Version 1)
Quarter: 2014Q1

REPORT INFORMATION
  Report Type: Spontaneous
  Country: IT (occurrence: IT)
  Receive Date: 20140131
  Receipt Date: 20140131
  Transmission Date: 20141002
  Serious: Yes (Hospitalization)
  Sender: FDA-Public Use
  Company Number: IT-ACTAVIS-2014-01008

PATIENT
  Age: 36 Year
  Sex: Male

DRUGS (7)
  1. PARACETAMOL [Suspect]
     Indication: SUICIDE ATTEMPT
     Dosage: 3000 MG, TOTAL
     Dates: start: 20130913, end: 20130913
  2. SERENASE /00015301/ [Suspect]
     Indication: SUICIDE ATTEMPT
     Dosage: 15 ML, TOTAL
     Route: 048
     Dates: start: 20130913, end: 20130913
  3. DEPAKIN CHRONO [Suspect]
     Indication: SUICIDE ATTEMPT
     Dosage: 8 POSOLOGICAL UNITS TOTAL
     Route: 048
     Dates: start: 20130913, end: 20130913
  4. SERACTIL [Suspect]
     Indication: SUICIDE ATTEMPT
     Dosage: 10 POSOLGICAL UNITS TOTAL
     Route: 048
     Dates: start: 20130913, end: 20130913
  5. SPIDIDOL [Suspect]
     Indication: SUICIDE ATTEMPT
     Dosage: 6 POSOLOGICAL UNITS TOTAL
     Route: 048
     Dates: start: 20130913, end: 20130913
  6. OKI [Suspect]
     Indication: SUICIDE ATTEMPT
     Dosage: 6 POSOLOGICAL UNITS TOTAL
     Route: 048
     Dates: start: 20130913, end: 20130913
  7. FEBRAX [Suspect]
     Indication: PRODUCT USED FOR UNKNOWN INDICATION
     Route: 065

REACTIONS (3)
  - Intentional overdose [Recovered/Resolved]
  - Sopor [Recovered/Resolved]
  - Drug abuse [Recovered/Resolved]
